FAERS Safety Report 8957119 (Version 1)
Quarter: 2012Q4

REPORT INFORMATION
  Report Type: 
  Country: MX (occurrence: MX)
  Receive Date: 20121211
  Receipt Date: 20121211
  Transmission Date: 20130627
  Serious: Yes (Hospitalization)
  Sender: FDA-Public Use
  Company Number: MX-ROCHE-1163719

PATIENT
  Age: 28 Year
  Sex: Female
  Weight: 64 kg

DRUGS (2)
  1. MABTHERA [Suspect]
     Indication: MIXED CONNECTIVE TISSUE DISEASE
     Route: 042
     Dates: start: 20121102
  2. MABTHERA [Suspect]
     Route: 042
     Dates: start: 20121121

REACTIONS (2)
  - Rash [Recovered/Resolved]
  - Anaphylactic reaction [Recovering/Resolving]
